FAERS Safety Report 19472422 (Version 3)
Quarter: 2021Q3

REPORT INFORMATION
  Report Type: Spontaneous
  Country: US (occurrence: US)
  Receive Date: 20210629
  Receipt Date: 20210826
  Transmission Date: 20211014
  Serious: No
  Sender: FDA-Public Use
  Company Number: US-SAGE-2021SAGE000067

PATIENT
  Age: 22 Year
  Sex: Female

DRUGS (3)
  1. ZULRESSO [Suspect]
     Active Substance: BREXANOLONE
     Dosage: BAG 2
     Route: 042
     Dates: start: 20200325, end: 20200326
  2. ZULRESSO [Suspect]
     Active Substance: BREXANOLONE
     Dosage: BAG 3
     Route: 042
     Dates: start: 20200326, end: 20200326
  3. ZULRESSO [Suspect]
     Active Substance: BREXANOLONE
     Indication: PERINATAL DEPRESSION
     Dosage: BAG 1
     Route: 042
     Dates: start: 20200324, end: 20200325

REACTIONS (1)
  - Medication error [Recovered/Resolved]

NARRATIVE: CASE EVENT DATE: 20200324
